FAERS Safety Report 17888714 (Version 26)
Quarter: 2025Q1

REPORT INFORMATION
  Report Type: Report from Study
  Country: US (occurrence: US)
  Receive Date: 20200612
  Receipt Date: 20250310
  Transmission Date: 20250408
  Serious: Yes (Other)
  Sender: TAKEDA
  Company Number: US-SHIRE-US202019313

PATIENT
  Age: 58 Year
  Sex: Female
  Weight: 92 kg

DRUGS (29)
  1. HUMAN IMMUNOGLOBULIN G [Suspect]
     Active Substance: HUMAN IMMUNOGLOBULIN G
     Indication: Congenital hypogammaglobulinaemia
  2. ICATIBANT [Suspect]
     Active Substance: ICATIBANT ACETATE
     Indication: Product used for unknown indication
  3. ICATIBANT [Suspect]
     Active Substance: ICATIBANT ACETATE
  4. HAEGARDA [Suspect]
     Active Substance: HUMAN C1-ESTERASE INHIBITOR
     Indication: Product used for unknown indication
  5. ACETAMINOPHEN [Concomitant]
     Active Substance: ACETAMINOPHEN
  6. CYMBALTA [Concomitant]
     Active Substance: DULOXETINE HYDROCHLORIDE
  7. LEVOTHYROXINE SODIUM [Concomitant]
     Active Substance: LEVOTHYROXINE SODIUM
  8. REQUIP [Concomitant]
     Active Substance: ROPINIROLE HYDROCHLORIDE
  9. OLMESARTAN MEDOXOMIL [Concomitant]
     Active Substance: OLMESARTAN MEDOXOMIL
  10. TIZANIDINE HYDROCHLORIDE [Concomitant]
     Active Substance: TIZANIDINE HYDROCHLORIDE
  11. PROPRANOLOL HYDROCHLORIDE [Concomitant]
     Active Substance: PROPRANOLOL HYDROCHLORIDE
  12. PROAIR RESPICLICK [Concomitant]
     Active Substance: ALBUTEROL SULFATE
  13. DICLOFENAC POTASSIUM [Concomitant]
     Active Substance: DICLOFENAC POTASSIUM
  14. VITAMIN D3 [Concomitant]
     Active Substance: CHOLECALCIFEROL
  15. LIDOCAINE [Concomitant]
     Active Substance: LIDOCAINE
  16. TRAMADOL HCL [Concomitant]
     Active Substance: TRAMADOL HYDROCHLORIDE
  17. METFORMIN HYDROCHLORIDE [Concomitant]
     Active Substance: METFORMIN HYDROCHLORIDE
  18. VITAMIN B [Concomitant]
     Active Substance: VITAMIN B
  19. DIPHENHYDRAMINE HYDROCHLORIDE [Concomitant]
     Active Substance: DIPHENHYDRAMINE HYDROCHLORIDE
  20. ADVAIR HFA [Concomitant]
     Active Substance: FLUTICASONE PROPIONATE\SALMETEROL XINAFOATE
  21. RELPAX [Concomitant]
     Active Substance: ELETRIPTAN HYDROBROMIDE
  22. ZOFRAN [Concomitant]
     Active Substance: ONDANSETRON HYDROCHLORIDE
  23. EPINEPHRINE [Concomitant]
     Active Substance: EPINEPHRINE
  24. KEFLEX [Concomitant]
     Active Substance: CEPHALEXIN
  25. AMERGE [Concomitant]
     Active Substance: NARATRIPTAN HYDROCHLORIDE
  26. POTASSIUM CITRATE [Concomitant]
     Active Substance: POTASSIUM CITRATE
  27. RANITIDINE [Concomitant]
     Active Substance: RANITIDINE
  28. TOPIRAMATE [Concomitant]
     Active Substance: TOPIRAMATE
  29. FLOVENT HFA [Concomitant]
     Active Substance: FLUTICASONE PROPIONATE

REACTIONS (21)
  - Kidney infection [Unknown]
  - Diabetes mellitus [Unknown]
  - Sinusitis [Recovered/Resolved]
  - Rosacea [Unknown]
  - Cystitis [Unknown]
  - Upper respiratory tract infection [Unknown]
  - Hereditary angioedema [Unknown]
  - Pharyngitis [Unknown]
  - COVID-19 [Unknown]
  - Infection [Unknown]
  - Myositis [Unknown]
  - Urinary tract infection [Unknown]
  - Influenza [Unknown]
  - Infusion site mass [Unknown]
  - Stomatitis [Unknown]
  - Infusion site discomfort [Unknown]
  - Burning sensation [Unknown]
  - Injection site pain [Unknown]
  - Dyspnoea [Unknown]
  - Infusion site pruritus [Unknown]
  - Infusion site pain [Unknown]

NARRATIVE: CASE EVENT DATE: 20220510
